FAERS Safety Report 18906103 (Version 2)
Quarter: 2021Q1

REPORT INFORMATION
  Report Type: Report from Study
  Country: US (occurrence: US)
  Receive Date: 20210217
  Receipt Date: 20210311
  Transmission Date: 20210420
  Serious: Yes (Hospitalization)
  Sender: FDA-Public Use
  Company Number: US-PFIZER INC-2021160555

PATIENT
  Age: 80 Year
  Sex: Male
  Weight: 117.91 kg

DRUGS (9)
  1. ORENITRAM [Suspect]
     Active Substance: TREPROSTINIL
     Dosage: 2 MG, 3X/DAY
     Route: 048
     Dates: start: 202011
  2. SILDENAFIL CITRATE. [Suspect]
     Active Substance: SILDENAFIL CITRATE
     Dosage: UNK
  3. ORENITRAM [Suspect]
     Active Substance: TREPROSTINIL
     Indication: PULMONARY ARTERIAL HYPERTENSION
     Dosage: 1 MG
     Route: 048
     Dates: start: 202011
  4. ORENITRAM [Suspect]
     Active Substance: TREPROSTINIL
     Dosage: 0.125 UNK
     Route: 048
  5. ORENITRAM [Suspect]
     Active Substance: TREPROSTINIL
     Dosage: 0.25 MG
     Route: 048
  6. TREPROSTINIL DIETHANOLAMINE [Suspect]
     Active Substance: TREPROSTINIL
     Indication: PULMONARY ARTERIAL HYPERTENSION
     Dosage: UNK MG
     Route: 048
     Dates: start: 20201120
  7. ORENITRAM [Suspect]
     Active Substance: TREPROSTINIL
     Dosage: 0.125 MG
     Route: 048
  8. ORENITRAM [Suspect]
     Active Substance: TREPROSTINIL
     Dosage: 1 UNK
     Route: 048
  9. TOPROL XL [Suspect]
     Active Substance: METOPROLOL SUCCINATE
     Dosage: UNK

REACTIONS (8)
  - Abdominal discomfort [Unknown]
  - Pruritus [Unknown]
  - Hypotension [Unknown]
  - Gastric disorder [Not Recovered/Not Resolved]
  - Diarrhoea [Unknown]
  - Procedural pain [Unknown]
  - Constipation [Unknown]
  - Nausea [Not Recovered/Not Resolved]

NARRATIVE: CASE EVENT DATE: 2020
